FAERS Safety Report 6250165-4 (Version None)
Quarter: 2009Q2

REPORT INFORMATION
  Report Type: 
  Country: None (occurrence: None)
  Receive Date: 20090626
  Receipt Date: 20090615
  Transmission Date: 20091009
  Serious: Yes (Hospitalization)
  Sender: FDA-Public Use
  Company Number: 236723K09USA

PATIENT
  Age: 56 Year
  Sex: Female
  Weight: 76 kg

DRUGS (7)
  1. REBIF [Suspect]
     Indication: MULTIPLE SCLEROSIS
     Dosage: 44 MCG, 3 IN 1 WEEKS, SUBCUTANEOUS
     Route: 058
     Dates: start: 20050901
  2. ATIVAN [Concomitant]
  3. EFFEXOR [Concomitant]
  4. NORVASC [Concomitant]
  5. DIOVAN [Concomitant]
  6. TYLENOL ES (COTYLENOL) [Concomitant]
  7. CENTRUM SILVER (CENTRUM SILVER) [Concomitant]

REACTIONS (2)
  - GALLBLADDER POLYP [None]
  - HIATUS HERNIA [None]
